FAERS Safety Report 19701758 (Version 1)
Quarter: 2021Q3

REPORT INFORMATION
  Report Type: Other
  Country: CN (occurrence: CN)
  Receive Date: 20210813
  Receipt Date: 20210813
  Transmission Date: 20211014
  Serious: Yes (Other)
  Sender: FDA-Public Use
  Company Number: CN-ROCHE-2886565

PATIENT
  Sex: Female

DRUGS (7)
  1. DOCETAXEL. [Suspect]
     Active Substance: DOCETAXEL
     Indication: HER2 POSITIVE BREAST CANCER
     Dosage: 3 CYCLES
     Route: 065
  2. PACLITAXEL. [Suspect]
     Active Substance: PACLITAXEL
     Indication: HER2 POSITIVE BREAST CANCER
     Dosage: 12 COURSES
     Route: 065
  3. CARBOPLATIN. [Suspect]
     Active Substance: CARBOPLATIN
     Indication: HER2 POSITIVE BREAST CANCER
     Dosage: 6 MG/ML/MIN 6 CYCLES
     Route: 065
  4. TRASTUZUMAB. [Suspect]
     Active Substance: TRASTUZUMAB
     Indication: HER2 POSITIVE BREAST CANCER
     Route: 065
  5. 5?FLUOROURACIL [Suspect]
     Active Substance: FLUOROURACIL
     Indication: HER2 POSITIVE BREAST CANCER
     Dosage: FOUR CYCLES
     Route: 065
  6. EPIRUBICIN [Suspect]
     Active Substance: EPIRUBICIN
     Indication: HER2 POSITIVE BREAST CANCER
     Dosage: 4 COURSES
     Route: 065
  7. CYCLOPHOSPHAMIDE. [Suspect]
     Active Substance: CYCLOPHOSPHAMIDE
     Indication: HER2 POSITIVE BREAST CANCER
     Dosage: 4 COURSES
     Route: 065

REACTIONS (19)
  - Hepatitis [Unknown]
  - Thrombocytopenia [Unknown]
  - Hypersensitivity [Unknown]
  - Neutropenia [Unknown]
  - Peripheral sensory neuropathy [Unknown]
  - Diarrhoea [Unknown]
  - Cardiotoxicity [Unknown]
  - Anaemia [Unknown]
  - Paraesthesia [Unknown]
  - Palmar-plantar erythrodysaesthesia syndrome [Unknown]
  - Arthralgia [Unknown]
  - Acute megakaryocytic leukaemia [Unknown]
  - Ejection fraction decreased [Unknown]
  - Myalgia [Unknown]
  - Stomatitis [Unknown]
  - Febrile neutropenia [Unknown]
  - Cardiac failure congestive [Unknown]
  - Fatigue [Unknown]
  - Rash [Unknown]
